FAERS Safety Report 5884273-4 (Version None)
Quarter: 2008Q3

REPORT INFORMATION
  Report Type: 
  Country: None (occurrence: None)
  Receive Date: 20080915
  Receipt Date: 20080904
  Transmission Date: 20090109
  Serious: Yes (Other)
  Sender: FDA-Public Use
  Company Number: US-SANOFI-SYNTHELABO-A03200700452

PATIENT
  Sex: Male
  Weight: 59 kg

DRUGS (10)
  1. TAMSULOSIN HCL [Concomitant]
     Indication: PROSTATOMEGALY
     Route: 048
     Dates: start: 20000801
  2. PHENYTOIN [Concomitant]
     Indication: CONVULSION
     Dosage: 100 MG (2 CAPSULES) BID
     Route: 048
     Dates: start: 19640101
  3. NITROGLYCERIN [Concomitant]
     Indication: CHEST PAIN
     Route: 060
  4. LAMOTRIGINE [Concomitant]
     Indication: CONVULSION
     Route: 048
  5. LOVASTATIN [Concomitant]
     Indication: CARDIAC DISORDER
     Route: 048
     Dates: start: 19991001
  6. PLAVIX [Suspect]
     Indication: MYOCARDIAL INFARCTION
     Route: 048
     Dates: start: 20010205, end: 20010329
  7. PLAVIX [Suspect]
     Indication: FAMILIAL TREMOR
     Route: 048
     Dates: start: 20010205, end: 20010329
  8. NITROGLYCERIN [Concomitant]
     Indication: DRUG USE FOR UNKNOWN INDICATION
     Route: 061
  9. ASPIRIN [Concomitant]
     Indication: CEREBROVASCULAR ACCIDENT
     Route: 048
     Dates: start: 19990101
  10. ATENOLOL [Suspect]
     Indication: CARDIAC DISORDER
     Dosage: 50 MG (2 TABLETS) BID
     Route: 048
     Dates: start: 19991001

REACTIONS (18)
  - AMNESIA [None]
  - ANGIOEDEMA [None]
  - ANTICONVULSANT DRUG LEVEL ABNORMAL [None]
  - ASTHENIA [None]
  - BLOOD PRESSURE INCREASED [None]
  - CHEST PAIN [None]
  - CONVULSION [None]
  - DRUG INTERACTION [None]
  - DYSPNOEA [None]
  - FATIGUE [None]
  - FEELING OF BODY TEMPERATURE CHANGE [None]
  - HYPOAESTHESIA [None]
  - INSOMNIA [None]
  - MYALGIA [None]
  - NIGHT SWEATS [None]
  - PAIN OF SKIN [None]
  - PARAESTHESIA [None]
  - STOMACH DISCOMFORT [None]
